FAERS Safety Report 8557396-9 (Version None)
Quarter: 2012Q3

REPORT INFORMATION
  Report Type: 
  Country: None (occurrence: None)
  Receive Date: 20120801
  Receipt Date: 20120730
  Transmission Date: 20120928
  Serious: Yes (Hospitalization, Other)
  Sender: FDA-Public Use
  Company Number: US-SHIRE-ALL1-2012-02462

PATIENT
  Age: 22 Year
  Sex: Male
  Weight: 75.737 kg

DRUGS (2)
  1. VYVANSE [Suspect]
     Indication: ATTENTION DEFICIT/HYPERACTIVITY DISORDER
     Dosage: 30 MG, 1X/DAY:QD
     Route: 048
     Dates: start: 20120101, end: 20120101
  2. VYVANSE [Suspect]
     Dosage: UNK, UNKNOWN
     Route: 048
     Dates: start: 20120101

REACTIONS (3)
  - UNEVALUABLE EVENT [None]
  - ROAD TRAFFIC ACCIDENT [None]
  - TACHYCARDIA [None]
